FAERS Safety Report 9406466 (Version 1)
Quarter: 2013Q3

REPORT INFORMATION
  Report Type: Spontaneous
  Country: US (occurrence: US)
  Receive Date: 20130718
  Receipt Date: 20130718
  Transmission Date: 20140515
  Serious: Yes (Other)
  Sender: FDA-Public Use
  Company Number: US-ROCHE-1249148

PATIENT
  Sex: Male

DRUGS (1)
  1. TAMIFLU [Suspect]
     Indication: PRODUCT USED FOR UNKNOWN INDICATION
     Route: 048
     Dates: start: 20130101

REACTIONS (7)
  - Swollen tongue [Unknown]
  - Dysphagia [Unknown]
  - Dyspnoea [Unknown]
  - Emotional distress [Unknown]
  - Back pain [Unknown]
  - Dysgeusia [Unknown]
  - Malaise [Unknown]
